FAERS Safety Report 5398575-1 (Version None)
Quarter: 2007Q3

REPORT INFORMATION
  Report Type: 
  Country: None (occurrence: None)
  Receive Date: 20070726
  Receipt Date: 20061019
  Transmission Date: 20080115
  Serious: No
  Sender: FDA-Public Use
  Company Number: US-AMGEN-KDL197710

PATIENT
  Sex: Male

DRUGS (7)
  1. PROCRIT [Suspect]
     Indication: RENAL FAILURE CHRONIC
     Dates: start: 20061010
  2. CLONIDINE [Concomitant]
  3. GLIMEPIRIDE [Concomitant]
  4. ZOCOR [Concomitant]
  5. LABETALOL HCL [Concomitant]
  6. SPIRONOLACTONE [Concomitant]
  7. MINOXIDIL [Concomitant]

REACTIONS (1)
  - WEIGHT INCREASED [None]
